FAERS Safety Report 13117641 (Version 1)
Quarter: 2017Q1

REPORT INFORMATION
  Report Type: Spontaneous
  Country: JP (occurrence: JP)
  Receive Date: 20170116
  Receipt Date: 20170116
  Transmission Date: 20170428
  Serious: Yes (Other)
  Sender: FDA-Public Use
  Company Number: JP-GLAXOSMITHKLINE-JP2017GSK004468

PATIENT
  Age: 27 Year
  Sex: Female

DRUGS (1)
  1. LAMOTRIGINE. [Suspect]
     Active Substance: LAMOTRIGINE
     Indication: PRODUCT USED FOR UNKNOWN INDICATION
     Dosage: 25 MG, QD

REACTIONS (17)
  - Face oedema [Unknown]
  - Leukopenia [Unknown]
  - Rash pustular [Recovering/Resolving]
  - Pyrexia [Unknown]
  - Erythema [Recovering/Resolving]
  - Lymphocyte transformation test positive [Unknown]
  - Drug reaction with eosinophilia and systemic symptoms [Recovering/Resolving]
  - Localised oedema [Unknown]
  - Hepatic function abnormal [Unknown]
  - Lymphadenopathy [Unknown]
  - Drug hypersensitivity [Unknown]
  - Rash generalised [Unknown]
  - Purpura [Unknown]
  - Oedema peripheral [Unknown]
  - Rash [Recovering/Resolving]
  - Oral candidiasis [Unknown]
  - Hepatitis [Unknown]
